FAERS Safety Report 7043904-6 (Version None)
Quarter: 2010Q4

REPORT INFORMATION
  Report Type: 
  Country: None (occurrence: None)
  Receive Date: 20101012
  Receipt Date: 20101012
  Transmission Date: 20110411
  Serious: Yes (Hospitalization)
  Sender: FDA-Public Use
  Company Number: None

PATIENT
  Age: 85 Year
  Sex: Male
  Weight: 69.4003 kg

DRUGS (1)
  1. OMALIZUMAB [Suspect]
     Indication: RHEUMATOID ARTHRITIS
     Dosage: 2000 6 MONTHS IV DRIP
     Route: 041
     Dates: start: 20080418, end: 20100505

REACTIONS (1)
  - SINUSITIS FUNGAL [None]
